FAERS Safety Report 7335397-6 (Version None)
Quarter: 2011Q1

REPORT INFORMATION
  Report Type: 
  Country: None (occurrence: None)
  Receive Date: 20110307
  Receipt Date: 20110302
  Transmission Date: 20110831
  Serious: Yes (Hospitalization)
  Sender: FDA-Public Use
  Company Number: BR-ABBOTT-11P-020-0709068-00

PATIENT
  Sex: Female
  Weight: 52 kg

DRUGS (3)
  1. LEFLUNOMIDE [Concomitant]
     Indication: PRODUCT USED FOR UNKNOWN INDICATION
  2. HUMIRA [Suspect]
     Indication: RHEUMATOID ARTHRITIS
     Route: 058
     Dates: start: 20080101
  3. LIMBITROL [Concomitant]
     Indication: ANTIDEPRESSANT THERAPY
     Route: 048

REACTIONS (10)
  - BODY HEIGHT DECREASED [None]
  - DECREASED APPETITE [None]
  - ANAEMIA [None]
  - FINGER DEFORMITY [None]
  - ASTHENIA [None]
  - PALLOR [None]
  - WEIGHT DECREASED [None]
  - PAIN IN EXTREMITY [None]
  - NODULE [None]
  - FATIGUE [None]
